FAERS Safety Report 22365010 (Version 2)
Quarter: 2023Q2

REPORT INFORMATION
  Report Type: Spontaneous
  Country: US (occurrence: US)
  Receive Date: 20230525
  Receipt Date: 20230603
  Transmission Date: 20230721
  Serious: Yes (Death, Hospitalization, Other)
  Sender: FDA-Public Use
  Company Number: US-UNITED THERAPEUTICS-UNT-2023-013307

PATIENT
  Age: 50 Year
  Sex: Female

DRUGS (9)
  1. REMODULIN [Suspect]
     Active Substance: TREPROSTINIL
     Indication: Pulmonary arterial hypertension
     Dosage: 0.11310 ?G/KG (AT THE PUMP RATE OF 38 UL/HR), CONTINUING
     Route: 058
     Dates: start: 202305, end: 202305
  2. REMODULIN [Suspect]
     Active Substance: TREPROSTINIL
     Dosage: 0.11607 ?G/KG (AT THE PUMP RATE OF 39 UL/HR), CONTINUING
     Route: 058
     Dates: start: 202305
  3. REMODULIN [Suspect]
     Active Substance: TREPROSTINIL
     Dosage: 0.080 ?G/KG, CONTINUING
     Route: 058
     Dates: start: 202305, end: 202305
  4. REMODULIN [Suspect]
     Active Substance: TREPROSTINIL
     Dosage: 0.10417 ?G/KG, CONTINUING
     Route: 058
     Dates: start: 202305
  5. REMODULIN [Suspect]
     Active Substance: TREPROSTINIL
     Dosage: UNK, CONTINUING
     Route: 058
     Dates: start: 202305
  6. REMODULIN [Suspect]
     Active Substance: TREPROSTINIL
     Indication: Pulmonary arterial hypertension
     Dosage: UNK, CONTINUING
     Route: 041
     Dates: start: 202304, end: 202305
  7. REMODULIN [Suspect]
     Active Substance: TREPROSTINIL
     Dosage: 0.114  ?G/KG, CONTINUING
     Route: 041
     Dates: start: 202305, end: 202305
  8. ADEMPAS [Concomitant]
     Active Substance: RIOCIGUAT
     Indication: Product used for unknown indication
     Dosage: UNK
     Route: 065
  9. AMBRISENTAN [Concomitant]
     Active Substance: AMBRISENTAN
     Indication: Product used for unknown indication
     Dosage: UNK
     Route: 065

REACTIONS (8)
  - Death [Fatal]
  - Dyspnoea [Unknown]
  - Right ventricular failure [Unknown]
  - Malabsorption from administration site [Unknown]
  - Jugular vein distension [Unknown]
  - Right ventricular dilatation [Unknown]
  - Fatigue [Unknown]
  - Nausea [Unknown]

NARRATIVE: CASE EVENT DATE: 20230501
